FAERS Safety Report 25130684 (Version 1)
Quarter: 2025Q1

REPORT INFORMATION
  Report Type: Spontaneous
  Country: FR (occurrence: FR)
  Receive Date: 20250327
  Receipt Date: 20250327
  Transmission Date: 20250408
  Serious: Yes (Hospitalization)
  Sender: MERCK SHARP & DOHME LLC
  Company Number: None

PATIENT
  Age: 58 Year
  Sex: Female

DRUGS (6)
  1. PEMBROLIZUMAB [Suspect]
     Active Substance: PEMBROLIZUMAB
     Indication: Lung adenocarcinoma
     Dosage: 200 MG, Q3W
     Route: 042
     Dates: start: 20240102, end: 20241128
  2. OMEPRAZOLE [Concomitant]
     Active Substance: OMEPRAZOLE
  3. KEPPRA [Concomitant]
     Active Substance: LEVETIRACETAM
  4. ABILIFY 10 mg, tablet [Concomitant]
  5. ARANESP [Concomitant]
     Active Substance: DARBEPOETIN ALFA
  6. ACETAMINOPHEN [Concomitant]
     Active Substance: ACETAMINOPHEN

REACTIONS (2)
  - Immune-mediated cholestasis [Not Recovered/Not Resolved]
  - Immune-mediated cholangitis [Not Recovered/Not Resolved]

NARRATIVE: CASE EVENT DATE: 20241205
